FAERS Safety Report 24256085 (Version 2)
Quarter: 2024Q3

REPORT INFORMATION
  Report Type: Report from Study
  Country: US (occurrence: US)
  Receive Date: 20240827
  Receipt Date: 20240906
  Transmission Date: 20241016
  Serious: Yes (Other)
  Sender: ABBVIE
  Company Number: GB-ABBVIE-5894876

PATIENT

DRUGS (3)
  1. VENETOCLAX [Suspect]
     Active Substance: VENETOCLAX
     Indication: Mantle cell lymphoma
     Route: 048
  2. ZANUBRUTINIB [Suspect]
     Active Substance: ZANUBRUTINIB
     Indication: Mantle cell lymphoma
     Dosage: STARTING DAY1
     Route: 048
  3. GAZYVA [Suspect]
     Active Substance: OBINUTUZUMAB
     Indication: Mantle cell lymphoma
     Dosage: DAY 1 OR SPLIT DAY 1-2, 8, 15 OF C1, AND DAY 1 OF C2-8
     Route: 042

REACTIONS (11)
  - Infusion related reaction [Unknown]
  - Febrile neutropenia [Unknown]
  - Thrombocytopenia [Unknown]
  - Neutropenia [Unknown]
  - Neutropenia [Unknown]
  - Pneumonia [Unknown]
  - Diarrhoea [Unknown]
  - COVID-19 [Unknown]
  - Nausea [Unknown]
  - Fatigue [Unknown]
  - Anaemia [Unknown]
